FAERS Safety Report 13889177 (Version 2)
Quarter: 2018Q1

REPORT INFORMATION
  Report Type: Spontaneous
  Country: FR (occurrence: FR)
  Receive Date: 20170821
  Receipt Date: 20180131
  Transmission Date: 20180508
  Serious: Yes (Hospitalization, Other)
  Sender: FDA-Public Use
  Company Number: FR-MYLANLABS-2017M1050422

PATIENT
  Age: 51 Year
  Sex: Male

DRUGS (1)
  1. LEPONEX [Suspect]
     Active Substance: CLOZAPINE
     Indication: SCHIZOPHRENIA
     Dosage: UNK
     Route: 048
     Dates: start: 20170517, end: 20170729

REACTIONS (8)
  - Thrombocytopenia [Unknown]
  - Aplasia [Unknown]
  - Agranulocytosis [Recovering/Resolving]
  - Bronchitis [Unknown]
  - Blood pressure increased [Unknown]
  - Lung infection [Unknown]
  - Heart rate increased [Unknown]
  - Inflammation [Unknown]

NARRATIVE: CASE EVENT DATE: 20170728
